FAERS Safety Report 4710771-2 (Version None)
Quarter: 2005Q3

REPORT INFORMATION
  Report Type: 
  Country: None (occurrence: None)
  Receive Date: 20050707
  Receipt Date: 20050621
  Transmission Date: 20060218
  Serious: Yes (Disabling)
  Sender: FDA-Public Use
  Company Number: FR_050606669

PATIENT
  Age: 64 Year
  Sex: Female

DRUGS (4)
  1. PERGOLIDE MESYLATE [Suspect]
     Indication: PARKINSON'S DISEASE
  2. MODOPAR [Concomitant]
  3. FOSAMAX [Concomitant]
  4. CALCIDOSE (CALCIUM CARBONATE) [Concomitant]

REACTIONS (5)
  - AORTIC VALVE DISEASE [None]
  - CARDIAC FAILURE [None]
  - CARDIAC VALVE DISEASE [None]
  - CONDITION AGGRAVATED [None]
  - PULMONARY ARTERIAL PRESSURE INCREASED [None]
